FAERS Safety Report 10269259 (Version 1)
Quarter: 2014Q3

REPORT INFORMATION
  Report Type: Spontaneous
  Country: JP (occurrence: JP)
  Receive Date: 20140701
  Receipt Date: 20140701
  Transmission Date: 20150326
  Serious: Yes (Hospitalization)
  Sender: FDA-Public Use
  Company Number: JP-009507513-1406JPN013578

PATIENT
  Sex: Female

DRUGS (6)
  1. FOSAMAX [Suspect]
     Active Substance: ALENDRONATE SODIUM
     Dosage: 35 MG, ONCE A WEEK
     Route: 048
     Dates: start: 2012, end: 2013
  2. PL [Suspect]
     Active Substance: ACETAMINOPHEN\CAFFEINE\PROMETHAZINE\SALICYLAMIDE
     Indication: NASOPHARYNGITIS
     Dosage: UNK,
     Route: 048
     Dates: start: 201406, end: 201406
  3. MEIACT [Suspect]
     Active Substance: CEFDITOREN PIVOXIL
     Indication: TOOTH INFECTION
     Dosage: UNK
     Dates: start: 201406, end: 201406
  4. WARFARIN [Concomitant]
     Active Substance: WARFARIN
     Route: 048
  5. FOSAMAX [Suspect]
     Active Substance: ALENDRONATE SODIUM
     Dosage: 35 MG, ONCE A WEEK
     Route: 048
     Dates: end: 201406
  6. KENALOG [Concomitant]
     Active Substance: TRIAMCINOLONE ACETONIDE
     Indication: GINGIVAL SWELLING
     Dosage: UNK
     Route: 061
     Dates: start: 201406

REACTIONS (9)
  - Tooth infection [Recovered/Resolved]
  - Sciatica [Not Recovered/Not Resolved]
  - Gingival disorder [Not Recovered/Not Resolved]
  - Toothache [Recovered/Resolved]
  - Compression fracture [Recovered/Resolved]
  - Gingival swelling [Recovering/Resolving]
  - Nasopharyngitis [Unknown]
  - Atrial fibrillation [Unknown]
  - Palatal swelling [Recovering/Resolving]

NARRATIVE: CASE EVENT DATE: 2013
